FAERS Safety Report 5792690-6 (Version None)
Quarter: 2008Q2

REPORT INFORMATION
  Report Type: 
  Country: None (occurrence: None)
  Receive Date: 20080624
  Receipt Date: 20080617
  Transmission Date: 20081010
  Serious: Yes (Death, Hospitalization)
  Sender: FDA-Public Use
  Company Number: CERZ-1000212

PATIENT
  Age: 54 Year
  Sex: Male
  Weight: 61.3 kg

DRUGS (3)
  1. CEREZYME [Suspect]
     Indication: GAUCHER'S DISEASE
     Dosage: 4000 U, QW, INTRAVENOUS, 5200 U, QW, INTRAVENOUS, 5200 U, Q2W, INTRAVENOUS
     Route: 042
     Dates: end: 20080101
  2. CEREZYME [Suspect]
     Indication: GAUCHER'S DISEASE
     Dosage: 4000 U, QW, INTRAVENOUS, 5200 U, QW, INTRAVENOUS, 5200 U, Q2W, INTRAVENOUS
     Route: 042
     Dates: start: 19970408, end: 20080201
  3. CEREZYME [Suspect]
     Indication: GAUCHER'S DISEASE
     Dosage: 4000 U, QW, INTRAVENOUS, 5200 U, QW, INTRAVENOUS, 5200 U, Q2W, INTRAVENOUS
     Route: 042
     Dates: start: 20080201

REACTIONS (9)
  - ANEURYSMAL BONE CYST [None]
  - ANGIOSARCOMA [None]
  - ARTHRECTOMY [None]
  - FALL [None]
  - FEMUR FRACTURE [None]
  - HAEMOGLOBIN DECREASED [None]
  - ILL-DEFINED DISORDER [None]
  - LEG AMPUTATION [None]
  - LOWER LIMB FRACTURE [None]
